FAERS Safety Report 5021672-7 (Version None)
Quarter: 2006Q2

REPORT INFORMATION
  Report Type: 
  Country: None (occurrence: None)
  Receive Date: 20060605
  Receipt Date: 20060519
  Transmission Date: 20061013
  Serious: Yes (Hospitalization)
  Sender: FDA-Public Use
  Company Number: US200604004274

PATIENT
  Sex: Male
  Weight: 163.3 kg

DRUGS (2)
  1. ZYPREXA [Suspect]
     Dosage: 10 MG
     Dates: start: 19970101, end: 20050219
  2. DIVALPROEX SODIUM [Concomitant]

REACTIONS (2)
  - DIABETES MELLITUS [None]
  - THROMBOSIS [None]
